FAERS Safety Report 9790710 (Version 1)
Quarter: 2013Q4

REPORT INFORMATION
  Report Type: Report from Study
  Country: IT (occurrence: IT)
  Receive Date: 20131231
  Receipt Date: 20131231
  Transmission Date: 20140711
  Serious: Yes (Other)
  Sender: FDA-Public Use
  Company Number: IT-VIIV HEALTHCARE LIMITED-B0956446A

PATIENT
  Age: 54 Year
  Sex: Male

DRUGS (2)
  1. KIVEXA [Suspect]
     Indication: HIV INFECTION
     Route: 065
  2. EFAVIRENZ [Suspect]
     Indication: HIV INFECTION
     Route: 065

REACTIONS (1)
  - Hypertrophic cardiomyopathy [Unknown]
